FAERS Safety Report 10732121 (Version 1)
Quarter: 2015Q1

REPORT INFORMATION
  Report Type: Spontaneous
  Country: US (occurrence: US)
  Receive Date: 20150123
  Receipt Date: 20150123
  Transmission Date: 20150721
  Serious: No
  Sender: FDA-Public Use
  Company Number: US-BAYER-2015-010297

PATIENT
  Age: 70 Year
  Sex: Female
  Weight: 86.17 kg

DRUGS (4)
  1. ALEVE [Suspect]
     Active Substance: NAPROXEN SODIUM
     Indication: ARTHRALGIA
     Dosage: UNK DF, PRN
     Route: 048
     Dates: start: 2006
  2. ZYRTEC [Concomitant]
     Active Substance: CETIRIZINE HYDROCHLORIDE
     Indication: ARTHRALGIA
     Dosage: UNK DF, PRN
     Route: 048
     Dates: start: 2009
  3. ALEVE [Suspect]
     Active Substance: NAPROXEN SODIUM
     Indication: SCIATICA
     Dosage: 4-6 DF, QD
     Route: 048
     Dates: start: 2006
  4. ZYRTEC [Concomitant]
     Active Substance: CETIRIZINE HYDROCHLORIDE
     Indication: SCIATICA
     Dosage: 4-6 DF, QD
     Route: 048
     Dates: start: 2009

REACTIONS (2)
  - Incorrect drug administration duration [Unknown]
  - Extra dose administered [Unknown]

NARRATIVE: CASE EVENT DATE: 201501
